FAERS Safety Report 18883044 (Version 1)
Quarter: 2021Q1

REPORT INFORMATION
  Report Type: Spontaneous
  Country: CZ (occurrence: CZ)
  Receive Date: 20210211
  Receipt Date: 20210211
  Transmission Date: 20210420
  Serious: Yes (Other)
  Sender: FDA-Public Use
  Company Number: NVSC2021CZ026917

PATIENT
  Sex: Male

DRUGS (1)
  1. TULIP (ATORVASTATIN) [Suspect]
     Active Substance: ATORVASTATIN
     Indication: PRODUCT USED FOR UNKNOWN INDICATION
     Dosage: 10 MG
     Route: 065

REACTIONS (7)
  - Peripheral swelling [Unknown]
  - Gait inability [Unknown]
  - Hypersensitivity [Recovered/Resolved]
  - Skin discolouration [Unknown]
  - Pain in extremity [Unknown]
  - Dyspnoea exertional [Unknown]
  - Erythema [Unknown]

NARRATIVE: CASE EVENT DATE: 202101
